FAERS Safety Report 8095616-8 (Version None)
Quarter: 2012Q1

REPORT INFORMATION
  Report Type: 
  Country: None (occurrence: None)
  Receive Date: 20120129
  Receipt Date: 20111228
  Transmission Date: 20120608
  Serious: No
  Sender: FDA-Public Use
  Company Number: US-ABBOTT-11P-163-0887315-00

PATIENT
  Sex: Female

DRUGS (4)
  1. TACLONEX [Concomitant]
     Indication: PSORIASIS
  2. CHANTIX [Concomitant]
     Indication: EX-TOBACCO USER
     Dates: start: 20111201
  3. VECTICAL [Concomitant]
     Indication: PSORIASIS
     Dosage: DAILY
  4. HUMIRA [Suspect]
     Indication: PSORIASIS
     Route: 058
     Dates: start: 20100401, end: 20111223

REACTIONS (2)
  - DRUG INEFFECTIVE [None]
  - PSORIASIS [None]
